FAERS Safety Report 8838474 (Version 3)
Quarter: 2012Q4

REPORT INFORMATION
  Report Type: 
  Country: JP (occurrence: JP)
  Receive Date: 20121012
  Receipt Date: 20121025
  Transmission Date: 20130627
  Serious: Yes (Death, Life-Threatening, Hospitalization, Other)
  Sender: FDA-Public Use
  Company Number: PHHY2012JP089975

PATIENT
  Age: 62 Year
  Sex: Female

DRUGS (3)
  1. NEORAL [Suspect]
     Indication: NEPHROTIC SYNDROME
     Dosage: 100 mg, UNK
     Route: 048
     Dates: start: 20110602, end: 20110628
  2. PREDNISOLONE [Suspect]
     Indication: NEPHROTIC SYNDROME
     Dosage: 50 mg, UNK
     Route: 048
     Dates: start: 20110316
  3. BREDININ [Concomitant]
     Indication: NEPHROTIC SYNDROME
     Dosage: 100 mg, daily
     Route: 048
     Dates: start: 20110920, end: 20111020

REACTIONS (9)
  - Multi-organ failure [Fatal]
  - Necrotising fasciitis [Fatal]
  - Pain in extremity [Fatal]
  - Erythema [Fatal]
  - Haemodynamic instability [Fatal]
  - Pyelonephritis acute [Unknown]
  - Thrombocytopenia [Recovered/Resolved]
  - Escherichia test positive [Unknown]
  - Drug ineffective [Unknown]
